FAERS Safety Report 13940172 (Version 2)
Quarter: 2017Q4

REPORT INFORMATION
  Report Type: Spontaneous
  Country: JP (occurrence: JP)
  Receive Date: 20170906
  Receipt Date: 20171213
  Transmission Date: 20180320
  Serious: Yes (Life-Threatening)
  Sender: FDA-Public Use
  Company Number: JP-ACTELION-A-CH2017-158996

PATIENT
  Age: 62 Year
  Sex: Female

DRUGS (27)
  1. UPTRAVI [Suspect]
     Active Substance: SELEXIPAG
     Dosage: 0.8 MG, QD
     Route: 048
     Dates: start: 20170225, end: 20170317
  2. UPTRAVI [Suspect]
     Active Substance: SELEXIPAG
     Dosage: 1.6 MG, QD
     Route: 048
     Dates: start: 20170401, end: 20170428
  3. UPTRAVI [Suspect]
     Active Substance: SELEXIPAG
     Dosage: 2.4 MG, QD
     Route: 048
     Dates: start: 20170819
  4. KIPRES [Concomitant]
     Active Substance: MONTELUKAST SODIUM
     Dosage: UNK
  5. SYMBICORT [Concomitant]
     Active Substance: BUDESONIDE\FORMOTEROL FUMARATE DIHYDRATE
     Dosage: UNK
     Dates: end: 20170317
  6. LOPEMIN [Concomitant]
     Active Substance: LOPERAMIDE HYDROCHLORIDE
     Dosage: UNK
     Dates: start: 20170512
  7. UPTRAVI [Suspect]
     Active Substance: SELEXIPAG
     Dosage: 2.0 MG, QD
     Route: 048
     Dates: start: 20170520, end: 20170526
  8. UPTRAVI [Suspect]
     Active Substance: SELEXIPAG
     Dosage: 2.4 MG, QD
     Route: 048
     Dates: start: 20170527, end: 20170714
  9. UPTRAVI [Suspect]
     Active Substance: SELEXIPAG
     Dosage: 2.8 MG, QD
     Route: 048
     Dates: start: 20170715, end: 20170728
  10. OXYGEN. [Concomitant]
     Active Substance: OXYGEN
  11. ADCIRCA [Concomitant]
     Active Substance: TADALAFIL
     Dosage: UNK
  12. UPTRAVI [Suspect]
     Active Substance: SELEXIPAG
     Dosage: 2.4 MG, QD
     Route: 048
     Dates: start: 20170513, end: 20170519
  13. UPTRAVI [Suspect]
     Active Substance: SELEXIPAG
     Dosage: 3.2 MG, QD
     Route: 048
     Dates: start: 20170729, end: 20170803
  14. UPTRAVI [Suspect]
     Active Substance: SELEXIPAG
     Dosage: 2.8 MG, QD
     Route: 048
     Dates: start: 20170804, end: 20170818
  15. FUROSEMIDE. [Concomitant]
     Active Substance: FUROSEMIDE
     Dosage: UNK
  16. SPIRONOLACTONE. [Concomitant]
     Active Substance: SPIRONOLACTONE
     Dosage: UNK
  17. HERBESSER [Concomitant]
     Active Substance: DILTIAZEM HYDROCHLORIDE
     Dosage: UNK
  18. RELVAR [Concomitant]
     Active Substance: FLUTICASONE FUROATE\VILANTEROL TRIFENATATE
     Dosage: UNK
     Dates: start: 20170318
  19. CALONAL [Concomitant]
     Active Substance: ACETAMINOPHEN
     Dosage: UNK
     Dates: start: 20170526
  20. UPTRAVI [Suspect]
     Active Substance: SELEXIPAG
     Indication: PULMONARY ARTERIAL HYPERTENSION
     Dosage: 2.0 MG, QD
     Route: 048
     Dates: start: 20170429, end: 20170512
  21. UPTRAVI [Suspect]
     Active Substance: SELEXIPAG
     Dosage: 1.2 MG, QD
     Route: 048
     Dates: start: 20170318, end: 20170331
  22. NIFEDIPINE. [Concomitant]
     Active Substance: NIFEDIPINE
     Dosage: UNK
     Dates: end: 20170714
  23. WARFARIN [Concomitant]
     Active Substance: WARFARIN
     Dosage: UNK
  24. OPSUMIT [Concomitant]
     Active Substance: MACITENTAN
     Dosage: UNK
     Route: 048
  25. REVATIO [Concomitant]
     Active Substance: SILDENAFIL CITRATE
     Dosage: UNK
  26. BENIDIPINE HYDROCHLORIDE [Concomitant]
     Active Substance: BENIDIPINE HYDROCHLORIDE
     Dosage: UNK
  27. SAMSCA [Concomitant]
     Active Substance: TOLVAPTAN
     Dosage: UNK
     Dates: start: 20170225

REACTIONS (4)
  - Colon cancer [Recovered/Resolved]
  - Nausea [Recovered/Resolved]
  - Diarrhoea [Not Recovered/Not Resolved]
  - Headache [Not Recovered/Not Resolved]

NARRATIVE: CASE EVENT DATE: 20170512
